FAERS Safety Report 11072348 (Version 1)
Quarter: 2015Q2

REPORT INFORMATION
  Report Type: Spontaneous
  Country: US (occurrence: US)
  Receive Date: 20150428
  Receipt Date: 20150428
  Transmission Date: 20150821
  Serious: No
  Sender: FDA-Public Use
  Company Number: US-009507513-1504USA020992

PATIENT
  Age: 65 Year
  Sex: Female

DRUGS (1)
  1. BELSOMRA [Suspect]
     Active Substance: SUVOREXANT
     Dosage: 10 MG, ONLY TAKEN ONCE
     Route: 048
     Dates: start: 20150421, end: 20150422

REACTIONS (7)
  - Muscular weakness [Unknown]
  - Feeling abnormal [Unknown]
  - Depressed mood [Unknown]
  - Phobia of driving [Unknown]
  - Movement disorder [Unknown]
  - Nightmare [Unknown]
  - Crying [Unknown]

NARRATIVE: CASE EVENT DATE: 20150421
